FAERS Safety Report 5839987-9 (Version None)
Quarter: 2008Q3

REPORT INFORMATION
  Report Type: 
  Country: None (occurrence: None)
  Receive Date: 20080811
  Receipt Date: 20080729
  Transmission Date: 20090109
  Serious: Yes (Life-Threatening, Hospitalization, Disabling)
  Sender: FDA-Public Use
  Company Number: PHHO2008IT04415

PATIENT
  Sex: Female
  Weight: 74 kg

DRUGS (4)
  1. TASIGNA [Suspect]
     Indication: CHRONIC MYELOID LEUKAEMIA
     Dosage: 400 MG, BID
     Route: 048
     Dates: start: 20071016, end: 20080401
  2. RANITIDINE [Concomitant]
     Indication: GASTRITIS PROPHYLAXIS
     Dosage: UNK
     Dates: start: 20070214
  3. FERLIXIT [Concomitant]
     Indication: ANAEMIA PROPHYLAXIS
     Dosage: UNK
     Dates: start: 20070313, end: 20080403
  4. ISMIGEN [Concomitant]
     Indication: PROPHYLAXIS
     Dosage: UNK
     Dates: start: 20071001, end: 20080403

REACTIONS (21)
  - ANAEMIA [None]
  - BLOOD CREATININE INCREASED [None]
  - BRAIN INJURY [None]
  - BREATH SOUNDS ABNORMAL [None]
  - BRONCHIECTASIS [None]
  - CLONUS [None]
  - COMA [None]
  - COUGH [None]
  - CREPITATIONS [None]
  - HAEMOPTYSIS [None]
  - HYPERTENSIVE CRISIS [None]
  - MYOCARDIAL INFARCTION [None]
  - NEUTROPHILIA [None]
  - NON-CARDIAC CHEST PAIN [None]
  - PLEURAL EFFUSION [None]
  - PNEUMONIA [None]
  - PRODUCTIVE COUGH [None]
  - PYREXIA [None]
  - RESPIRATORY FAILURE [None]
  - SHOCK HAEMORRHAGIC [None]
  - TRANSAMINASES INCREASED [None]
